FAERS Safety Report 19964636 (Version 8)
Quarter: 2021Q4

REPORT INFORMATION
  Report Type: Report from Study
  Country: DE (occurrence: DE)
  Receive Date: 20211018
  Receipt Date: 20211229
  Transmission Date: 20220303
  Serious: Yes (Death, Life-Threatening, Hospitalization, Other)
  Sender: FDA-Public Use
  Company Number: DE-002147023-NVSC2021DE102246

PATIENT
  Age: 55 Year
  Sex: Female
  Weight: 52.4 kg

DRUGS (10)
  1. ONDANSETRON [Suspect]
     Active Substance: ONDANSETRON
     Indication: Product used for unknown indication
     Dosage: 16 MILLIGRAM, QD (16 MG, QD)/START DATE:17-MAR-2021
     Route: 065
     Dates: end: 20210326
  2. POSACONAZOLE [Suspect]
     Active Substance: POSACONAZOLE
     Indication: Product used for unknown indication
     Dosage: 300 MILLIGRAM, QD (300 MG, QD)/START DATE:04-FEB-2021
     Route: 065
  3. GILTERITINIB [Suspect]
     Active Substance: GILTERITINIB
     Indication: Product used for unknown indication
     Dosage: 80 MILLIGRAM, QD/ START DATE:24-MAR-2021
     Route: 065
     Dates: end: 20210406
  4. GILTERITINIB [Suspect]
     Active Substance: GILTERITINIB
     Dosage: 80 MILLIGRAM/ START DATE:06-APR-2021
     Route: 065
  5. DAUNORUBICIN [Suspect]
     Active Substance: DAUNORUBICIN
     Indication: Product used for unknown indication
     Dosage: 60 MILLIGRAM/SQ. METER, QD/ START DATE: 17-MAR-2021
     Route: 065
     Dates: end: 20210319
  6. DAUNORUBICIN [Suspect]
     Active Substance: DAUNORUBICIN
     Dosage: 60 MILLIGRAM/SQ. METER/ START DATE: 19-MAR-2021
     Route: 065
  7. CYTARABINE [Suspect]
     Active Substance: CYTARABINE
     Indication: Product used for unknown indication
     Dosage: 2000 MILLIGRAM/SQ. METER, QD/ START DATE: 17-MAR-2021
     Route: 065
     Dates: end: 20210317
  8. CYTARABINE [Suspect]
     Active Substance: CYTARABINE
     Dosage: 2000 MILLIGRAM/SQ. METER/ START DATE: 22-MAR-2021
     Route: 065
  9. CYTARABINE [Suspect]
     Active Substance: CYTARABINE
     Dosage: 3000 MILLIGRAM, QD/ START DATE: 18-MAR-2021
     Route: 065
     Dates: end: 20210322
  10. CYTARABINE [Suspect]
     Active Substance: CYTARABINE
     Dosage: 1500 MILLIGRAM, QD/ START DATE: 23-MAR-2021
     Route: 065
     Dates: end: 20210323

REACTIONS (19)
  - Septic shock [Fatal]
  - Cardiogenic shock [Fatal]
  - Tachycardia [Not Recovered/Not Resolved]
  - Pulmonary oedema [Not Recovered/Not Resolved]
  - Ejection fraction decreased [Not Recovered/Not Resolved]
  - Respiratory failure [Not Recovered/Not Resolved]
  - Staphylococcal infection [Not Recovered/Not Resolved]
  - Electrocardiogram ST segment depression [Unknown]
  - Electrocardiogram PR shortened [Unknown]
  - Electrocardiogram QT prolonged [Not Recovered/Not Resolved]
  - Atypical pneumonia [Not Recovered/Not Resolved]
  - Left atrial hypertrophy [Unknown]
  - Herpes simplex [Unknown]
  - Organ failure [Not Recovered/Not Resolved]
  - Cardiac dysfunction [Not Recovered/Not Resolved]
  - Lung opacity [Unknown]
  - Pleural effusion [Unknown]
  - Respiratory disorder [Unknown]
  - Lung infiltration [Unknown]

NARRATIVE: CASE EVENT DATE: 20210324
